FAERS Safety Report 8327632 (Version 3)
Quarter: 2013Q1

REPORT INFORMATION
  Report Type: Spontaneous
  Country: US (occurrence: US)
  Receive Date: 20120109
  Receipt Date: 20130110
  Transmission Date: 20140127
  Serious: Yes (Death, Other)
  Sender: FDA-Public Use
  Company Number: US-BRISTOL-MYERS SQUIBB COMPANY-16282956

PATIENT
  Age: 34 Year
  Sex: Female

DRUGS (5)
  1. NULOJIX [Suspect]
     Indication: RENAL TRANSPLANT
     Route: 042
     Dates: start: 20111027
  2. CAMPATH [Concomitant]
     Dosage: 1 DOSE
     Dates: start: 20111125
  3. MYFORTIC [Concomitant]
     Dates: start: 20111021, end: 20120104
  4. ZOLOFT [Concomitant]
  5. PREDNISONE [Concomitant]

REACTIONS (2)
  - Tuberculosis [Fatal]
  - Transplant rejection [Recovered/Resolved]
